FAERS Safety Report 9559953 (Version 1)
Quarter: 2013Q3

REPORT INFORMATION
  Report Type: Spontaneous
  Country: US (occurrence: None)
  Receive Date: 20130909
  Receipt Date: 20130909
  Transmission Date: 20140515
  Serious: Yes (Other)
  Sender: FDA-Public Use
  Company Number: 380478

PATIENT
  Age: 68 Year
  Sex: Female

DRUGS (1)
  1. VICTOZA (LIRAGLUTIDE) SOLUTION FOR INJECTION, 6MG/ML [Suspect]
     Indication: DIABETES MELLITUS
     Route: 058

REACTIONS (6)
  - Pancreatitis [None]
  - Abdominal pain upper [None]
  - Diarrhoea [None]
  - Dysphagia [None]
  - Dyspnoea [None]
  - Dysphonia [None]
